FAERS Safety Report 7692666-8 (Version None)
Quarter: 2011Q3

REPORT INFORMATION
  Report Type: 
  Country: None (occurrence: None)
  Receive Date: 20110819
  Receipt Date: 20110812
  Transmission Date: 20111222
  Serious: Yes (Hospitalization, Other)
  Sender: FDA-Public Use
  Company Number: US-JNJFOC-20110509303

PATIENT
  Sex: Female

DRUGS (6)
  1. LEVAQUIN [Suspect]
     Indication: PNEUMONIA
     Route: 048
  2. LEVAQUIN [Suspect]
     Indication: UPPER RESPIRATORY TRACT INFECTION
     Route: 048
  3. LEVAQUIN [Suspect]
     Indication: SINUSITIS
     Route: 048
  4. LEVAQUIN [Suspect]
     Indication: INFLUENZA
     Route: 048
  5. LEVAQUIN [Suspect]
     Indication: NASOPHARYNGITIS
     Route: 048
  6. LEVAQUIN [Suspect]
     Indication: H1N1 INFLUENZA
     Route: 048

REACTIONS (4)
  - TENDONITIS [None]
  - ANXIETY [None]
  - ROTATOR CUFF SYNDROME [None]
  - PAIN [None]
